FAERS Safety Report 17407745 (Version 1)
Quarter: 2020Q1

REPORT INFORMATION
  Report Type: Spontaneous
  Country: CA (occurrence: CA)
  Receive Date: 20200212
  Receipt Date: 20200212
  Transmission Date: 20200409
  Serious: Yes (Other)
  Sender: FDA-Public Use
  Company Number: CA-MYLANLABS-2020M1015591

PATIENT
  Age: 15 Year
  Sex: Male

DRUGS (7)
  1. QUETIAPINE. [Suspect]
     Active Substance: QUETIAPINE
     Indication: AUTISM SPECTRUM DISORDER
     Dosage: RECEIVED EVERY NIGHT AT BEDTIME
     Route: 065
  2. LAMOTRIGINE. [Concomitant]
     Active Substance: LAMOTRIGINE
     Indication: AUTISM SPECTRUM DISORDER
     Dosage: 25 MILLIGRAM, BID
     Route: 065
  3. ZIPRASIDONE. [Suspect]
     Active Substance: ZIPRASIDONE
     Indication: AUTISM SPECTRUM DISORDER
     Dosage: INITIAL DOSE UNKNOWN
     Route: 065
  4. OLANZAPINE. [Suspect]
     Active Substance: OLANZAPINE
     Indication: AUTISM SPECTRUM DISORDER
     Dosage: 10 MILLIGRAM, BID
     Route: 065
  5. SERTRALINE [Suspect]
     Active Substance: SERTRALINE HYDROCHLORIDE
     Indication: AUTISM SPECTRUM DISORDER
     Dosage: RECEIVED EVERY MORNING
     Route: 065
  6. CLONIDINE. [Suspect]
     Active Substance: CLONIDINE
     Indication: AUTISM SPECTRUM DISORDER
     Dosage: 0.1 MILLIGRAM, BID
     Route: 065
  7. ZIPRASIDONE. [Suspect]
     Active Substance: ZIPRASIDONE
     Dosage: 40 MILLIGRAM, BID
     Route: 065

REACTIONS (2)
  - Off label use [Unknown]
  - Obesity [Recovering/Resolving]
